FAERS Safety Report 5117746-2 (Version None)
Quarter: 2006Q3

REPORT INFORMATION
  Report Type: 
  Country: None (occurrence: None)
  Receive Date: 20060929
  Receipt Date: 20060925
  Transmission Date: 20061208
  Serious: Yes (Hospitalization)
  Sender: FDA-Public Use
  Company Number: 2006US003248

PATIENT
  Age: 67 Year
  Sex: Male

DRUGS (6)
  1. MELPHALAN [Suspect]
     Indication: MULTIPLE MYELOMA
     Dosage: 221MG CUMULATIVE DOSE
     Dates: start: 20060620, end: 20060621
  2. DEXAMETHASONE TAB [Suspect]
     Indication: MULTIPLE MYELOMA
     Dates: start: 20060620, end: 20060621
  3. HYDROCORTISONE [Concomitant]
     Route: 042
  4. CALCIUM GLUCONATE [Concomitant]
     Dosage: 19.2MEQ PER DAY
     Route: 042
  5. FUROSEMIDE [Concomitant]
     Route: 042
  6. METOPROLOL [Concomitant]
     Dosage: 25MG PER DAY
     Route: 048

REACTIONS (8)
  - ACUTE RESPIRATORY FAILURE [None]
  - CYTOMEGALOVIRUS ANTIGEN POSITIVE [None]
  - DYSPNOEA [None]
  - OEDEMA PERIPHERAL [None]
  - PNEUMONIA [None]
  - PYREXIA [None]
  - RESPIRATORY DISTRESS [None]
  - STAPHYLOCOCCAL INFECTION [None]
